FAERS Safety Report 9568351 (Version 1)
Quarter: 2013Q3

REPORT INFORMATION
  Report Type: Spontaneous
  Country: US (occurrence: US)
  Receive Date: 20130930
  Receipt Date: 20130930
  Transmission Date: 20140515
  Serious: No
  Sender: FDA-Public Use
  Company Number: US-AMGEN-USASP2013053548

PATIENT
  Age: 12 Year
  Sex: Male
  Weight: 64.85 kg

DRUGS (2)
  1. ENBREL [Suspect]
     Indication: PRODUCT USED FOR UNKNOWN INDICATION
     Dosage: 25 MG/ML, 2 TIMES/WK
     Route: 058
  2. TYLENOL COLD                       /00384601/ [Concomitant]
     Dosage: UNK
     Route: 065

REACTIONS (1)
  - Pain in jaw [Unknown]
